FAERS Safety Report 13523749 (Version 2)
Quarter: 2018Q1

REPORT INFORMATION
  Report Type: Spontaneous
  Country: US (occurrence: US)
  Receive Date: 20170508
  Receipt Date: 20180313
  Transmission Date: 20180508
  Serious: No
  Sender: FDA-Public Use
  Company Number: US-VIFOR (INTERNATIONAL) INC.-VIT-2017-02924

PATIENT
  Sex: Female

DRUGS (20)
  1. IRON [Concomitant]
     Active Substance: IRON
  2. ATORVASTATIN CALCIUM. [Concomitant]
     Active Substance: ATORVASTATIN CALCIUM
  3. MULTI FOR HER [Concomitant]
  4. SIROLIMUS. [Concomitant]
     Active Substance: SIROLIMUS
  5. ACTOS [Concomitant]
     Active Substance: PIOGLITAZONE HYDROCHLORIDE
  6. FOLIC ACID. [Concomitant]
     Active Substance: FOLIC ACID
  7. COLECALCIFEROL~~CALCIUM CARBONATE [Concomitant]
  8. PANTOPRAZOLE SODIUM SESQUIHYDRATE [Concomitant]
     Active Substance: PANTOPRAZOLE SODIUM
  9. LISINOPRIL. [Concomitant]
     Active Substance: LISINOPRIL
  10. VELTASSA [Suspect]
     Active Substance: PATIROMER
  11. RAPAMUNE [Concomitant]
     Active Substance: SIROLIMUS
  12. GLIPIZIDE. [Concomitant]
     Active Substance: GLIPIZIDE
  13. HYDRALAZINE HYDROCHLORIDE. [Concomitant]
     Active Substance: HYDRALAZINE HYDROCHLORIDE
  14. SULFAMETHOXAZOLE~~TRIMETHOPRIM [Concomitant]
  15. VELTASSA [Suspect]
     Active Substance: PATIROMER
     Indication: HYPERKALAEMIA
     Route: 048
     Dates: start: 20160825
  16. ERGOCALCIFEROL. [Concomitant]
     Active Substance: ERGOCALCIFEROL
  17. CICLOSPORIN [Concomitant]
     Active Substance: CYCLOSPORINE
  18. PARACETAMOL~~HYDROCODONE [Concomitant]
  19. PLAVIX [Concomitant]
     Active Substance: CLOPIDOGREL BISULFATE
  20. LASIX [Concomitant]
     Active Substance: FUROSEMIDE

REACTIONS (3)
  - Drug dose omission [Unknown]
  - Off label use [Unknown]
  - No adverse event [Unknown]
